FAERS Safety Report 11544097 (Version 1)
Quarter: 2015Q3

REPORT INFORMATION
  Report Type: Spontaneous
  Country: US (occurrence: US)
  Receive Date: 20150924
  Receipt Date: 20150924
  Transmission Date: 20151125
  Serious: No
  Sender: FDA-Public Use
  Company Number: US-ASTRAZENECA-2015SE88803

PATIENT
  Age: 62 Year
  Sex: Female
  Weight: 58.5 kg

DRUGS (10)
  1. PAROXETINE [Concomitant]
     Active Substance: PAROXETINE\PAROXETINE HYDROCHLORIDE
     Indication: ANXIETY
     Route: 048
     Dates: start: 2007
  2. HYDROCODONE [Concomitant]
     Active Substance: HYDROCODONE
     Indication: PAIN
     Dosage: 5/325 MG ,THREE TIMES A DAY.
     Route: 048
     Dates: start: 2013
  3. GABAPENTIN. [Concomitant]
     Active Substance: GABAPENTIN
     Indication: HERPES ZOSTER
     Route: 048
  4. EQUATE STOOL SOFTENER [Concomitant]
     Active Substance: CASANTHRANOL\DOCUSATE SODIUM
     Indication: CONSTIPATION
     Route: 048
     Dates: start: 2013
  5. NEXIUM [Suspect]
     Active Substance: ESOMEPRAZOLE MAGNESIUM
     Indication: GASTROOESOPHAGEAL REFLUX DISEASE
     Route: 048
     Dates: start: 2011
  6. VENLAFAXINE [Concomitant]
     Active Substance: VENLAFAXINE HYDROCHLORIDE
     Indication: HOT FLUSH
     Route: 048
     Dates: start: 2013
  7. OVER-THE-COUNTER WOMEN SILVER 50 AND OVER MULTIVITAMINS [Concomitant]
     Indication: ROUTINE HEALTH MAINTENANCE
     Dosage: DAILY
     Route: 048
     Dates: start: 2000
  8. LEVOTHYROXINE. [Concomitant]
     Active Substance: LEVOTHYROXINE
     Indication: THYROID DISORDER
     Route: 048
     Dates: start: 1998
  9. RANITIDINE [Concomitant]
     Active Substance: RANITIDINE\RANITIDINE HYDROCHLORIDE
     Indication: GASTROOESOPHAGEAL REFLUX DISEASE
     Route: 048
     Dates: start: 201411
  10. IRON [Concomitant]
     Active Substance: IRON
     Indication: ANAEMIA
     Route: 048
     Dates: start: 2013

REACTIONS (4)
  - Memory impairment [Unknown]
  - Irritable bowel syndrome [Unknown]
  - Panic attack [Unknown]
  - Drug dose omission [Unknown]

NARRATIVE: CASE EVENT DATE: 2011
